FAERS Safety Report 26195204 (Version 1)
Quarter: 2025Q4

REPORT INFORMATION
  Report Type: Report from Study
  Country: EU (occurrence: None)
  Receive Date: 20251224
  Receipt Date: 20251224
  Transmission Date: 20260117
  Serious: Yes (Other)
  Sender: SYNDAX
  Company Number: EU-SYNDAX PHARMACEUTICALS, INC.-2025FR001026

PATIENT

DRUGS (2)
  1. REVUMENIB SESQUIFUMARATE [Suspect]
     Active Substance: REVUMENIB SESQUIFUMARATE
     Indication: Acute leukaemia
     Dosage: 270 MILLIGRAM, EVERY 12 HOURS (Q12H)
     Route: 061
  2. REVUMENIB SESQUIFUMARATE [Suspect]
     Active Substance: REVUMENIB SESQUIFUMARATE
     Dosage: 160 MILLIGRAM, Q12H
     Route: 061

REACTIONS (1)
  - Thrombocytopenia [Recovered/Resolved]
